FAERS Safety Report 4876109-5 (Version None)
Quarter: 2006Q1

REPORT INFORMATION
  Report Type: 
  Country: None (occurrence: None)
  Receive Date: 20060106
  Receipt Date: 20060106
  Transmission Date: 20060701
  Serious: Yes (Other)
  Sender: FDA-Public Use
  Company Number: None

PATIENT
  Sex: Male
  Weight: 143.7903 kg

DRUGS (1)
  1. VICODIN [Suspect]
     Indication: BACK PAIN

REACTIONS (2)
  - ABDOMINAL PAIN UPPER [None]
  - VOMITING [None]
